FAERS Safety Report 12673527 (Version 2)
Quarter: 2016Q4

REPORT INFORMATION
  Report Type: Spontaneous
  Country: BR (occurrence: BR)
  Receive Date: 20160822
  Receipt Date: 20161004
  Transmission Date: 20170207
  Serious: Yes (Other)
  Sender: FDA-Public Use
  Company Number: PHHY2016BR113268

PATIENT
  Sex: Female
  Weight: 85 kg

DRUGS (6)
  1. LITHIUM. [Concomitant]
     Active Substance: LITHIUM
     Indication: SCHIZOPHRENIA
     Dosage: 1 DF, QD
     Route: 065
  2. CLONAZEPAM. [Concomitant]
     Active Substance: CLONAZEPAM
     Indication: SCHIZOPHRENIA
     Dosage: 1 DF, QD
     Route: 048
  3. MIRTAZAPINE. [Suspect]
     Active Substance: MIRTAZAPINE
     Indication: INSOMNIA
     Dosage: 3 DF, QD
     Route: 048
     Dates: start: 20160808
  4. CLAVULIN BD [Concomitant]
     Active Substance: AMOXICILLIN\CLAVULANATE POTASSIUM
     Indication: PRODUCT USED FOR UNKNOWN INDICATION
     Route: 065
  5. DONAREN [Concomitant]
     Active Substance: TRAZODONE HYDROCHLORIDE
     Indication: SCHIZOPHRENIA
     Dosage: 3 DF, QD
     Route: 048
  6. OLANZAPINE. [Concomitant]
     Active Substance: OLANZAPINE
     Indication: SCHIZOPHRENIA
     Dosage: 3 DF, QD
     Route: 048

REACTIONS (12)
  - Arthralgia [Recovered/Resolved]
  - Urinary incontinence [Unknown]
  - Oral herpes [Recovered/Resolved]
  - Lip swelling [Recovered/Resolved]
  - Heart rate increased [Recovered/Resolved]
  - Ocular hyperaemia [Recovered/Resolved]
  - Bedridden [Recovered/Resolved]
  - Tremor [Recovered/Resolved]
  - Pyrexia [Recovered/Resolved]
  - Insomnia [Unknown]
  - Hyperhidrosis [Recovered/Resolved]
  - Restlessness [Recovered/Resolved]
